FAERS Safety Report 15600478 (Version 1)
Quarter: 2018Q4

REPORT INFORMATION
  Report Type: Spontaneous
  Country: IT (occurrence: IT)
  Receive Date: 20181109
  Receipt Date: 20181109
  Transmission Date: 20190205
  Serious: Yes (Other)
  Sender: FDA-Public Use
  Company Number: IT-009507513-1811ITA003440

PATIENT
  Age: 76 Year
  Sex: Female
  Weight: 64 kg

DRUGS (7)
  1. ZEPATIER [Suspect]
     Active Substance: ELBASVIR\GRAZOPREVIR
     Indication: HEPATITIS C
     Dosage: 1 DOSAGE FORM, QD
     Route: 048
     Dates: start: 20180601, end: 20180727
  2. ACETAMINOPHEN. [Concomitant]
     Active Substance: ACETAMINOPHEN
     Indication: PAIN
     Dosage: 500 MILLIGRAM
  3. HYDROCHLOROTHIAZIDE (+) OLMESARTAN MEDOXOMIL [Concomitant]
     Dosage: 52.5 MILLIGRAM, UNK
  4. BISOPROLOL FUMARATE. [Concomitant]
     Active Substance: BISOPROLOL FUMARATE
     Dosage: 1.25 MILLIGRAM, UNK
  5. OXATOMIDE [Concomitant]
     Active Substance: OXATOMIDE
     Indication: PRURITUS
  6. FLUNARIZINE [Concomitant]
     Active Substance: FLUNARIZINE
  7. FLUCONAZOLE. [Concomitant]
     Active Substance: FLUCONAZOLE
     Indication: SKIN CANDIDA
     Dosage: 100 MILLIGRAM, UNK
     Dates: start: 20180718, end: 20180720

REACTIONS (1)
  - Transaminases increased [Recovered/Resolved]

NARRATIVE: CASE EVENT DATE: 20180727
